FAERS Safety Report 8990608 (Version 1)
Quarter: 2012Q4

REPORT INFORMATION
  Report Type: 
  Country: JP (occurrence: JP)
  Receive Date: 20121228
  Receipt Date: 20121228
  Transmission Date: 20130627
  Serious: Yes (Hospitalization, Other)
  Sender: FDA-Public Use
  Company Number: JP-009507513-1212JPN010769

PATIENT
  Sex: Female

DRUGS (2)
  1. FOSAMAC TABLETS 35MG [Suspect]
     Dosage: 35 mg, qw
     Route: 048
     Dates: start: 2012
  2. SUNRYTHM [Concomitant]
     Dosage: daily dosage unknown
     Route: 048

REACTIONS (3)
  - Cerebral infarction [Unknown]
  - Surgery [Unknown]
  - Oedema peripheral [Unknown]
